FAERS Safety Report 9995455 (Version 1)
Quarter: 2014Q1

REPORT INFORMATION
  Report Type: Spontaneous
  Country: US (occurrence: None)
  Receive Date: 20140218
  Receipt Date: 20140218
  Transmission Date: 20141002
  Serious: No
  Sender: FDA-Public Use
  Company Number: 1000050737

PATIENT
  Age: 54 Year
  Sex: Male

DRUGS (7)
  1. VIIBRYD [Suspect]
     Dates: start: 201309
  2. VIIBRYD [Suspect]
  3. CLONAZEPAM [Concomitant]
  4. ABILIFY (ARIPIPRAZOLE) [Concomitant]
  5. MVI (VITAMINS NOS) [Concomitant]
  6. DIVALPROEX (VALPROATE SEMISODIUM) [Concomitant]
  7. ATORVASTATIN [Concomitant]

REACTIONS (1)
  - Diarrhoea [None]
